FAERS Safety Report 20758213 (Version 1)
Quarter: 2022Q2

REPORT INFORMATION
  Report Type: Spontaneous
  Country: CA (occurrence: CA)
  Receive Date: 20220427
  Receipt Date: 20220427
  Transmission Date: 20220720
  Serious: Yes (Hospitalization, Other)
  Sender: FDA-Public Use
  Company Number: CA-NAPPMUNDI-GBR-2022-0097230

PATIENT
  Age: 46 Year
  Sex: Female

DRUGS (17)
  1. MORPHINE SULFATE [Suspect]
     Active Substance: MORPHINE SULFATE
     Indication: Renal pain
     Dosage: UNK
     Route: 065
  2. CLOPIDOGREL BISULFATE [Suspect]
     Active Substance: CLOPIDOGREL BISULFATE
     Indication: Muscle spasticity
     Dosage: UNK, DAILY
     Route: 048
  3. CONTRAVE [Suspect]
     Active Substance: BUPROPION HYDROCHLORIDE\NALTREXONE HYDROCHLORIDE
     Indication: Weight control
     Dosage: 1 DOSAGE FORM, Q12H
     Route: 048
  4. CONTRAVE [Suspect]
     Active Substance: BUPROPION HYDROCHLORIDE\NALTREXONE HYDROCHLORIDE
     Dosage: 2 DOSAGE FORM, Q12H
     Route: 048
  5. CONTRAVE [Suspect]
     Active Substance: BUPROPION HYDROCHLORIDE\NALTREXONE HYDROCHLORIDE
     Dosage: 2 DOSAGE FORM, Q12H
     Route: 048
  6. CONTRAVE [Suspect]
     Active Substance: BUPROPION HYDROCHLORIDE\NALTREXONE HYDROCHLORIDE
     Dosage: 1 DOSAGE FORM, DAILY
     Route: 048
  7. CONTRAVE [Suspect]
     Active Substance: BUPROPION HYDROCHLORIDE\NALTREXONE HYDROCHLORIDE
     Dosage: 1 DOSAGE FORM, DAILY
     Route: 048
  8. CONTRAVE [Suspect]
     Active Substance: BUPROPION HYDROCHLORIDE\NALTREXONE HYDROCHLORIDE
     Dosage: UNK UNK, Q12H
     Route: 048
  9. CONTRAVE [Suspect]
     Active Substance: BUPROPION HYDROCHLORIDE\NALTREXONE HYDROCHLORIDE
     Dosage: 1 DOSAGE FORM, Q12H
     Route: 048
  10. CONTRAVE [Suspect]
     Active Substance: BUPROPION HYDROCHLORIDE\NALTREXONE HYDROCHLORIDE
     Dosage: UNK, Q12H
     Route: 048
  11. CONTRAVE [Suspect]
     Active Substance: BUPROPION HYDROCHLORIDE\NALTREXONE HYDROCHLORIDE
     Dosage: 1 DOSAGE FORM, Q12H
     Route: 048
  12. ASPIRIN [Concomitant]
     Active Substance: ASPIRIN
     Indication: Thrombosis
     Dosage: UNK, DAILY
     Route: 048
  13. BOSENTAN [Concomitant]
     Active Substance: BOSENTAN
     Indication: Prinzmetal angina
     Dosage: UNK, DAILY
     Route: 048
  14. CLOPIDOGREL [Concomitant]
     Active Substance: CLOPIDOGREL BISULFATE
     Indication: Thrombosis
     Dosage: UNK, DAILY
     Route: 048
  15. DEXILANT [Concomitant]
     Active Substance: DEXLANSOPRAZOLE
     Indication: Gastrooesophageal reflux disease
     Dosage: UNK, DAILY
     Route: 048
  16. DILTIAZEM [Concomitant]
     Active Substance: DILTIAZEM
     Indication: Prinzmetal angina
     Dosage: UNK, DAILY
     Route: 048
  17. SPIRONOLACTONE [Concomitant]
     Active Substance: SPIRONOLACTONE
     Indication: Prinzmetal angina
     Dosage: UNK, DAILY
     Route: 048

REACTIONS (16)
  - Abdominal pain [Not Recovered/Not Resolved]
  - Abnormal dreams [Not Recovered/Not Resolved]
  - Diverticulitis [Not Recovered/Not Resolved]
  - Drug interaction [Not Recovered/Not Resolved]
  - Drug titration error [Not Recovered/Not Resolved]
  - Fatigue [Not Recovered/Not Resolved]
  - Feeling hot [Not Recovered/Not Resolved]
  - Headache [Not Recovered/Not Resolved]
  - Hospitalisation [Not Recovered/Not Resolved]
  - Insomnia [Not Recovered/Not Resolved]
  - Muscle spasms [Not Recovered/Not Resolved]
  - Nausea [Not Recovered/Not Resolved]
  - Nephrolithiasis [Not Recovered/Not Resolved]
  - Nocturia [Not Recovered/Not Resolved]
  - Product dispensing error [Not Recovered/Not Resolved]
  - Symptom recurrence [Not Recovered/Not Resolved]
